FAERS Safety Report 10036090 (Version 1)
Quarter: 2014Q1

REPORT INFORMATION
  Report Type: Spontaneous
  Country: DE (occurrence: DE)
  Receive Date: 20140325
  Receipt Date: 20140325
  Transmission Date: 20141002
  Serious: Yes (Other)
  Sender: FDA-Public Use
  Company Number: DE-PFIZER INC-2014082722

PATIENT
  Age: 80 Year
  Sex: Female

DRUGS (1)
  1. LONOLOX [Suspect]
     Indication: HYPERTENSION
     Dosage: UNK

REACTIONS (2)
  - Pulmonary congestion [Unknown]
  - Pleural effusion [Unknown]
